FAERS Safety Report 17851600 (Version 2)
Quarter: 2020Q2

REPORT INFORMATION
  Report Type: Report from Study
  Country: GB (occurrence: GB)
  Receive Date: 20200602
  Receipt Date: 20200626
  Transmission Date: 20200714
  Serious: Yes (Other)
  Sender: FDA-Public Use
  Company Number: GB-JNJFOC-20200509615

PATIENT
  Sex: Female

DRUGS (2)
  1. STELARA [Suspect]
     Active Substance: USTEKINUMAB
     Indication: PSORIATIC ARTHROPATHY
     Route: 058
     Dates: start: 20150414
  2. STELARA [Suspect]
     Active Substance: USTEKINUMAB
     Indication: PSORIASIS
     Route: 058
     Dates: start: 20150414, end: 201912

REACTIONS (7)
  - Incorrect dose administered [Unknown]
  - Product dose omission [Unknown]
  - Arthritis infective [Unknown]
  - Psoriatic arthropathy [Unknown]
  - Swelling [Unknown]
  - Off label use [Unknown]
  - Psoriasis [Unknown]
